FAERS Safety Report 9427140 (Version 1)
Quarter: 2013Q3

REPORT INFORMATION
  Report Type: Spontaneous
  Country: JP (occurrence: JP)
  Receive Date: 20130730
  Receipt Date: 20130730
  Transmission Date: 20140515
  Serious: Yes (Other)
  Sender: FDA-Public Use
  Company Number: JP-ELI_LILLY_AND_COMPANY-JP201307008182

PATIENT
  Age: 51 Year
  Sex: Female

DRUGS (2)
  1. ALIMTA [Suspect]
     Indication: LUNG ADENOCARCINOMA
     Dosage: 700 MG/M2, UNK
     Route: 042
     Dates: start: 20130628, end: 20130628
  2. CARBOPLATIN [Suspect]
     Indication: LUNG ADENOCARCINOMA
     Dosage: UNK
     Route: 042
     Dates: start: 20130628, end: 20130628

REACTIONS (1)
  - Anaphylactic shock [Recovered/Resolved]
